FAERS Safety Report 12788694 (Version 2)
Quarter: 2016Q4

REPORT INFORMATION
  Report Type: Spontaneous
  Country: GB (occurrence: GB)
  Receive Date: 20160928
  Receipt Date: 20161014
  Transmission Date: 20170207
  Serious: Yes (Life-Threatening, Hospitalization)
  Sender: FDA-Public Use
  Company Number: GB-TEVA-694876ACC

PATIENT
  Age: 91 Year
  Sex: Female
  Weight: 49 kg

DRUGS (3)
  1. FUROSEMIDE. [Suspect]
     Active Substance: FUROSEMIDE
     Indication: CARDIAC FAILURE
  2. BRISTOL LABS RAMIPRIL [Suspect]
     Active Substance: RAMIPRIL
     Indication: HYPERTENSION
     Dosage: 1.25 MILLIGRAM DAILY;
     Route: 048
     Dates: start: 20160818, end: 20160820
  3. ASPIRIN. [Concomitant]
     Active Substance: ASPIRIN

REACTIONS (9)
  - Lip swelling [Unknown]
  - Bronchospasm [Unknown]
  - Cough [Unknown]
  - Eye swelling [Unknown]
  - Lower respiratory tract infection [Unknown]
  - Dyspnoea [Unknown]
  - Wrong technique in product usage process [Unknown]
  - Swelling face [Unknown]
  - Urinary tract infection [Unknown]

NARRATIVE: CASE EVENT DATE: 20160818
